FAERS Safety Report 9753367 (Version 1)
Quarter: 2013Q4

REPORT INFORMATION
  Report Type: Spontaneous
  Country: US (occurrence: US)
  Receive Date: 20131213
  Receipt Date: 20131213
  Transmission Date: 20140711
  Serious: No
  Sender: FDA-Public Use
  Company Number: US-TEVA-406111USA

PATIENT
  Age: 41 Year
  Sex: Female
  Weight: 72.64 kg

DRUGS (3)
  1. PARAGARD 380A [Suspect]
     Indication: CONTRACEPTION
     Route: 015
     Dates: start: 201203
  2. DOXYCYCLINE [Concomitant]
     Indication: ACNE
     Dosage: 40 MILLIGRAM DAILY;
     Route: 048
  3. SPIROLACTONE [Concomitant]
     Indication: ACNE
     Dosage: 100 MILLIGRAM DAILY;
     Route: 048

REACTIONS (3)
  - Metrorrhagia [Recovered/Resolved]
  - Oligomenorrhoea [Not Recovered/Not Resolved]
  - Device expulsion [Unknown]
